FAERS Safety Report 7389128-4 (Version None)
Quarter: 2011Q2

REPORT INFORMATION
  Report Type: 
  Country: None (occurrence: None)
  Receive Date: 20110401
  Receipt Date: 20110317
  Transmission Date: 20111010
  Serious: Yes (Disabling)
  Sender: FDA-Public Use
  Company Number: US-ROCHE-766542

PATIENT
  Sex: Female
  Weight: 99.3 kg

DRUGS (6)
  1. ACTEMRA [Suspect]
     Route: 042
     Dates: start: 20100903
  2. ACTEMRA [Suspect]
     Indication: RHEUMATOID ARTHRITIS
     Dosage: FORM: INFUSION
     Route: 042
     Dates: start: 20100409
  3. ACTEMRA [Suspect]
     Route: 042
     Dates: start: 20101001, end: 20101029
  4. PREDNISONE [Concomitant]
  5. ACTEMRA [Suspect]
     Route: 042
     Dates: start: 20100806
  6. TYLENOL W/ CODEINE NO. 3 [Concomitant]
     Indication: PAIN
     Dosage: DOSE 300/30MG
     Route: 048

REACTIONS (3)
  - SKIN EXFOLIATION [None]
  - RASH [None]
  - GENERALISED ERYTHEMA [None]
